FAERS Safety Report 4428711-2 (Version None)
Quarter: 2004Q3

REPORT INFORMATION
  Report Type: 
  Country: None (occurrence: None)
  Receive Date: 20040818
  Receipt Date: 20040114
  Transmission Date: 20050211
  Serious: No
  Sender: FDA-Public Use
  Company Number: US-BRISTOL-MYERS SQUIBB COMPANY-12477980

PATIENT
  Age: 60 Year
  Sex: Female

DRUGS (6)
  1. TEQUIN [Suspect]
     Indication: BRONCHITIS
     Route: 048
     Dates: start: 20031231, end: 20040109
  2. FLONASE [Concomitant]
  3. ALLEGRA [Concomitant]
  4. ADVAIR DISKUS 100/50 [Concomitant]
  5. SINGULAIR [Concomitant]
  6. ALBUTEROL [Concomitant]

REACTIONS (1)
  - VISION BLURRED [None]
